FAERS Safety Report 5677419-4 (Version None)
Quarter: 2008Q1

REPORT INFORMATION
  Report Type: 
  Country: None (occurrence: None)
  Receive Date: 20080324
  Receipt Date: 20080320
  Transmission Date: 20080703
  Serious: Yes (Other)
  Sender: FDA-Public Use
  Company Number: GB-WYE-G01283108

PATIENT
  Sex: Male

DRUGS (4)
  1. EFFEXOR XR [Suspect]
     Dates: start: 19960320, end: 20070301
  2. EFFEXOR XR [Suspect]
     Dates: start: 20070301
  3. EFFEXOR XR [Suspect]
  4. EFFEXOR XR [Suspect]

REACTIONS (3)
  - DRUG WITHDRAWAL SYNDROME [None]
  - HEART RATE DECREASED [None]
  - PARAESTHESIA [None]
